FAERS Safety Report 15144672 (Version 1)
Quarter: 2018Q3

REPORT INFORMATION
  Report Type: Spontaneous
  Country: KR (occurrence: KR)
  Receive Date: 20180713
  Receipt Date: 20180713
  Transmission Date: 20181010
  Serious: Yes (Hospitalization, Other)
  Sender: FDA-Public Use
  Company Number: KR-009507513-1807KOR003648

PATIENT
  Sex: Female

DRUGS (39)
  1. VIMOVO [Concomitant]
     Active Substance: ESOMEPRAZOLE MAGNESIUM\NAPROXEN
     Dosage: UNK
     Route: 048
     Dates: start: 20180627
  2. DESOWEN [Concomitant]
     Active Substance: DESONIDE
     Dosage: UNK
     Dates: start: 20180626
  3. ZYLORIC [Concomitant]
     Active Substance: ALLOPURINOL
     Dosage: UNK
     Dates: start: 20180622
  4. CLINOLEIC [Concomitant]
     Active Substance: OLIVE OIL\SOYBEAN OIL
     Dosage: 500ML/BAG
     Dates: start: 20180628, end: 20180628
  5. MAGO [Concomitant]
     Dosage: UNK
     Dates: start: 20180625, end: 20180629
  6. NORFERRO [Concomitant]
     Dosage: UNK
     Dates: start: 20180625, end: 20180627
  7. PHAZYME (SIMETHICONE) [Concomitant]
     Dosage: UNK
     Dates: start: 20180622, end: 20180629
  8. RESOLOR [Concomitant]
     Active Substance: PRUCALOPRIDE SUCCINATE
     Dosage: UNK
     Route: 048
     Dates: start: 20180626, end: 20180629
  9. STILEN (MUGWORT) [Concomitant]
     Dosage: UNK
     Dates: start: 20180622, end: 20180629
  10. TARGIN [Concomitant]
     Active Substance: NALOXONE HYDROCHLORIDE\OXYCODONE HYDROCHLORIDE
     Dosage: UNK
     Route: 048
     Dates: start: 20180622, end: 20180629
  11. KEYTRUDA [Suspect]
     Active Substance: PEMBROLIZUMAB
     Dosage: UNK
     Dates: start: 20180531
  12. EXFORGE [Concomitant]
     Active Substance: AMLODIPINE BESYLATE\VALSARTAN
     Dosage: UNK
     Route: 048
     Dates: start: 20180625, end: 20180629
  13. KETOTOP [Concomitant]
     Dosage: UNK
     Dates: start: 20180622, end: 20180628
  14. NEURONTIN [Concomitant]
     Active Substance: GABAPENTIN
     Dosage: UNK
     Dates: start: 20180621, end: 20180628
  15. PHAZYME (SIMETHICONE) [Concomitant]
     Dosage: UNK
     Dates: start: 20180621
  16. ULTRACET [Concomitant]
     Active Substance: ACETAMINOPHEN\TRAMADOL HYDROCHLORIDE
     Dosage: UNK
     Route: 048
     Dates: start: 20180621, end: 20180622
  17. ZYLORIC [Concomitant]
     Active Substance: ALLOPURINOL
     Dosage: UNK
     Route: 048
     Dates: start: 20180621, end: 20180623
  18. OMNICEF [Concomitant]
     Active Substance: CEFDINIR
     Dosage: UNK
     Dates: start: 20180629
  19. VIMOVO [Concomitant]
     Active Substance: ESOMEPRAZOLE MAGNESIUM\NAPROXEN
     Dosage: UNK
     Dates: start: 20180628, end: 20180629
  20. SODIUM CHLORIDE. [Concomitant]
     Active Substance: SODIUM CHLORIDE
     Dosage: 100 ML, UNK
     Dates: start: 20180627, end: 20180627
  21. ZYLORIC [Concomitant]
     Active Substance: ALLOPURINOL
     Dosage: UNK
     Dates: start: 20180621
  22. KEYTRUDA [Suspect]
     Active Substance: PEMBROLIZUMAB
     Dosage: UNK
     Dates: start: 20180627
  23. NEURONTIN [Concomitant]
     Active Substance: GABAPENTIN
     Dosage: UNK
     Route: 048
     Dates: start: 20180622, end: 20180629
  24. PHAZYME (SIMETHICONE) [Concomitant]
     Dosage: UNK
     Dates: start: 20180621, end: 20180628
  25. STILEN (MUGWORT) [Concomitant]
     Dosage: UNK
     Dates: start: 20180621, end: 20180628
  26. TOREM [Concomitant]
     Active Substance: TORSEMIDE
     Dosage: UNK
     Route: 048
     Dates: start: 20180621, end: 20180624
  27. PYRIDOXINE [Concomitant]
     Active Substance: PYRIDOXINE
     Dosage: UNK
     Route: 048
     Dates: start: 20180622, end: 20180629
  28. PETHIDINE HCL HANA [Concomitant]
     Dosage: 0.5 ML, UNK
     Dates: start: 20180628, end: 20180628
  29. EXFORGE [Concomitant]
     Active Substance: AMLODIPINE BESYLATE\VALSARTAN
     Dosage: UNK
     Route: 048
     Dates: start: 20180621, end: 20180624
  30. BOLGRE CAPSULES [Concomitant]
     Active Substance: IRON PROTEIN SUCCINYLATE
     Dosage: UNK
     Dates: start: 20180621, end: 20180624
  31. ENTELON [Concomitant]
     Dosage: UNK
     Route: 048
     Dates: start: 20180621
  32. STILEN (MUGWORT) [Concomitant]
     Dosage: UNK
     Route: 048
     Dates: start: 20180621
  33. OMNICEF [Concomitant]
     Active Substance: CEFDINIR
     Dosage: UNK
     Dates: start: 20180629
  34. HEPARIN SODIUM. [Concomitant]
     Active Substance: HEPARIN SODIUM
     Dosage: 3 ML, UNK
     Dates: start: 20180627, end: 20180627
  35. ENTELON [Concomitant]
     Dosage: UNK
     Dates: start: 20180622, end: 20180629
  36. MAGO [Concomitant]
     Dosage: UNK
     Dates: start: 20180625, end: 20180628
  37. KEYTRUDA [Suspect]
     Active Substance: PEMBROLIZUMAB
     Indication: UTERINE CANCER
     Dosage: UNK
     Dates: start: 201805
  38. DUPHALAC [Concomitant]
     Active Substance: LACTULOSE
     Dosage: UNK
     Dates: start: 20180625, end: 20180629
  39. NEURONTIN [Concomitant]
     Active Substance: GABAPENTIN
     Dosage: UNK
     Dates: start: 20180621

REACTIONS (4)
  - Product use in unapproved indication [Unknown]
  - Packed red blood cell transfusion [Unknown]
  - Central venous catheterisation [Unknown]
  - Adverse event [Unknown]

NARRATIVE: CASE EVENT DATE: 20180625
